FAERS Safety Report 6367361-8 (Version None)
Quarter: 2009Q3

REPORT INFORMATION
  Report Type: 
  Country: None (occurrence: None)
  Receive Date: 20090921
  Receipt Date: 20090915
  Transmission Date: 20100115
  Serious: Yes (Hospitalization, Other)
  Sender: FDA-Public Use
  Company Number: A0602987A

PATIENT
  Sex: Male

DRUGS (10)
  1. ADVAIR HFA [Suspect]
     Indication: EMPHYSEMA
     Dosage: 2PUFF TWICE PER DAY
     Route: 055
  2. UNKNOWN MEDICATION [Concomitant]
  3. SPIRIVA [Concomitant]
  4. ASPIRIN [Concomitant]
  5. METOPROLOL TARTRATE [Concomitant]
  6. LOVASTATIN [Concomitant]
  7. LISINOPRIL [Concomitant]
  8. FUROSEMIDE [Concomitant]
  9. ALLOPURINOL [Concomitant]
  10. OMEPRAZOLE [Concomitant]

REACTIONS (6)
  - DYSPNOEA [None]
  - INCREASED BRONCHIAL SECRETION [None]
  - LUNG INFECTION [None]
  - MYOCARDIAL INFARCTION [None]
  - NOCTURNAL DYSPNOEA [None]
  - RASH [None]
